FAERS Safety Report 8061423-5 (Version None)
Quarter: 2012Q1

REPORT INFORMATION
  Report Type: 
  Country: None (occurrence: None)
  Receive Date: 20120120
  Receipt Date: 20111115
  Transmission Date: 20120608
  Serious: No
  Sender: FDA-Public Use
  Company Number: US-ALLERGAN-1114091US

PATIENT
  Age: 56 Year
  Sex: Female
  Weight: 70.295 kg

DRUGS (2)
  1. RESTASIS [Suspect]
     Indication: DRY EYE
     Dosage: 2 GTT, BID
     Route: 047
     Dates: start: 20111010, end: 20111017
  2. SYNTHROID [Concomitant]
     Indication: THYROID HORMONE REPLACEMENT THERAPY
     Dosage: 25 A?G, QD
     Route: 048

REACTIONS (8)
  - EYE SWELLING [None]
  - SCLERAL HYPERAEMIA [None]
  - ERYTHEMA OF EYELID [None]
  - EYE PAIN [None]
  - EYE IRRITATION [None]
  - EYELID OEDEMA [None]
  - EYELID PAIN [None]
  - OCULAR HYPERAEMIA [None]
